FAERS Safety Report 4929945-0 (Version None)
Quarter: 2006Q1

REPORT INFORMATION
  Report Type: 
  Country: None (occurrence: None)
  Receive Date: 20060301
  Receipt Date: 20050315
  Transmission Date: 20060701
  Serious: Yes (Hospitalization, Disabling, Other)
  Sender: FDA-Public Use
  Company Number: US-MERCK-0503USA03174

PATIENT
  Age: 27 Year
  Sex: Female
  Weight: 55 kg

DRUGS (3)
  1. VIOXX [Suspect]
     Indication: ARTHRITIS
     Route: 048
     Dates: start: 20010101, end: 20030101
  2. VIOXX [Suspect]
     Indication: FIBROMYALGIA
     Route: 048
     Dates: start: 20010101, end: 20030101
  3. TYLENOL (CAPLET) [Concomitant]
     Route: 065

REACTIONS (14)
  - BREAST NEOPLASM [None]
  - CARDIAC FAILURE [None]
  - CARDIOVASCULAR DISORDER [None]
  - CEREBROVASCULAR ACCIDENT [None]
  - CHEST PAIN [None]
  - DEPRESSION [None]
  - HEAD INJURY [None]
  - HEPATOCELLULAR DAMAGE [None]
  - MALFORMATION VENOUS [None]
  - MYOCARDIAL INFARCTION [None]
  - RENAL INJURY [None]
  - SYNCOPE [None]
  - THROMBOSIS [None]
  - ULCER [None]
